FAERS Safety Report 6692926-3 (Version None)
Quarter: 2010Q2

REPORT INFORMATION
  Report Type: 
  Country: None (occurrence: None)
  Receive Date: 20100422
  Receipt Date: 20100409
  Transmission Date: 20101027
  Serious: Yes (Other)
  Sender: FDA-Public Use
  Company Number: US-ELI_LILLY_AND_COMPANY-US201004004952

PATIENT
  Sex: Male

DRUGS (10)
  1. CYMBALTA [Suspect]
     Indication: DEPRESSION
     Dosage: 120 MG, EACH EVENING
     Dates: start: 20070101, end: 20100402
  2. CLONAZEPAM [Concomitant]
  3. CRESTOR [Concomitant]
  4. LIPITOR [Concomitant]
  5. MORPHINE [Concomitant]
  6. PERCOCET [Concomitant]
  7. SYNTHROID [Concomitant]
  8. LEXAPRO [Concomitant]
  9. HYDROCODONE BITARTRATE [Concomitant]
  10. SEROQUEL [Concomitant]

REACTIONS (24)
  - DELIRIUM [None]
  - DIABETES MELLITUS [None]
  - DISORIENTATION [None]
  - DRUG WITHDRAWAL SYNDROME [None]
  - FEELING ABNORMAL [None]
  - FEELING COLD [None]
  - GAIT DISTURBANCE [None]
  - HEAD INJURY [None]
  - HYPERHIDROSIS [None]
  - MEMORY IMPAIRMENT [None]
  - NAUSEA [None]
  - NEUROPATHY PERIPHERAL [None]
  - OEDEMA PERIPHERAL [None]
  - PAIN [None]
  - POOR QUALITY SLEEP [None]
  - RETCHING [None]
  - RIB FRACTURE [None]
  - ROAD TRAFFIC ACCIDENT [None]
  - SENSORY DISTURBANCE [None]
  - SLEEP DISORDER [None]
  - SUICIDAL IDEATION [None]
  - TEARFULNESS [None]
  - TREMOR [None]
  - VOMITING [None]
